FAERS Safety Report 22139204 (Version 2)
Quarter: 2023Q4

REPORT INFORMATION
  Report Type: Spontaneous
  Country: US (occurrence: US)
  Receive Date: 20230327
  Receipt Date: 20231031
  Transmission Date: 20240110
  Serious: Yes (Other)
  Sender: FDA-Public Use
  Company Number: US-APOTEX-2023AP005804

PATIENT
  Age: 70 Year
  Sex: Female

DRUGS (2)
  1. BETAPACE [Suspect]
     Active Substance: SOTALOL HYDROCHLORIDE
     Indication: Atrial fibrillation
     Dosage: 80 MILLIGRAM, BID
     Route: 065
     Dates: start: 201310
  2. BETAPACE [Suspect]
     Active Substance: SOTALOL HYDROCHLORIDE
     Dosage: 160 MILLIGRAM, BID
     Route: 065
     Dates: start: 201702

REACTIONS (1)
  - Torsade de pointes [Recovered/Resolved]

NARRATIVE: CASE EVENT DATE: 20220201
